FAERS Safety Report 7778889-8 (Version None)
Quarter: 2011Q3

REPORT INFORMATION
  Report Type: 
  Country: None (occurrence: None)
  Receive Date: 20110926
  Receipt Date: 20110916
  Transmission Date: 20111222
  Serious: Yes (Hospitalization, Other)
  Sender: FDA-Public Use
  Company Number: KR-BAYER-2011-049852

PATIENT
  Age: 62 Year
  Sex: Male
  Weight: 67 kg

DRUGS (112)
  1. MEK INHIBITOR (DIHYDROXYPROP-DIFLU-METHOXYPHEN-CYCLOPROPA-SULFAMI) [Suspect]
     Dosage: 50 MG, BID
     Route: 048
     Dates: start: 20110208, end: 20110216
  2. MEK INHIBITOR (DIHYDROXYPROP-DIFLU-METHOXYPHEN-CYCLOPROPA-SULFAMI) [Suspect]
     Dosage: 50 MG, QD
     Route: 048
     Dates: start: 20110217, end: 20110217
  3. MEK INHIBITOR (DIHYDROXYPROP-DIFLU-METHOXYPHEN-CYCLOPROPA-SULFAMI) [Suspect]
     Dosage: 50 MG, QD
     Route: 048
     Dates: start: 20110318, end: 20110318
  4. MEK INHIBITOR (DIHYDROXYPROP-DIFLU-METHOXYPHEN-CYCLOPROPA-SULFAMI) [Suspect]
     Dosage: 30 MG, BID
     Route: 048
     Dates: start: 20110513, end: 20110528
  5. MEK INHIBITOR (DIHYDROXYPROP-DIFLU-METHOXYPHEN-CYCLOPROPA-SULFAMI) [Suspect]
     Dosage: 30 MG, QD (PM)
     Route: 048
     Dates: start: 20110602, end: 20110602
  6. SORAFENIB (RAF KINASE INHIBITOR) [Suspect]
     Dosage: 600 MG, QD(200MG AM/ 400 MG PM)
     Route: 048
     Dates: start: 20110115, end: 20110120
  7. METOCLOPRAMIDE [Concomitant]
     Dosage: 2.5 MG, TID
     Route: 048
     Dates: start: 20110318, end: 20110417
  8. HEXAMIDINE [Concomitant]
     Dosage: 100 ML, QD
     Dates: start: 20110422, end: 20110430
  9. TRIAMCINOLONE [Concomitant]
     Dosage: 10 G, PRN
     Route: 061
     Dates: start: 20110422
  10. MEGACE [Concomitant]
     Dosage: 10 ML, QD
     Route: 048
     Dates: start: 20110422, end: 20110428
  11. GASMOTIN [Concomitant]
     Indication: DECREASED APPETITE
     Dosage: 5 MG, TID
     Route: 048
     Dates: start: 20110310
  12. MEK INHIBITOR (DIHYDROXYPROP-DIFLU-METHOXYPHEN-CYCLOPROPA-SULFAMI) [Suspect]
     Dosage: 30 MG, BID
     Route: 048
     Dates: start: 20110423, end: 20110511
  13. MEK INHIBITOR (DIHYDROXYPROP-DIFLU-METHOXYPHEN-CYCLOPROPA-SULFAMI) [Suspect]
     Dosage: 30 MG, QD(PM)
     Route: 048
     Dates: start: 20110512, end: 20110512
  14. MYDRIN P [Concomitant]
     Indication: MYDRIASIS
     Dosage: 10 ML, QD
     Route: 061
     Dates: start: 20101224, end: 20101224
  15. MYDRIN P [Concomitant]
     Dosage: 1 ML, QD
     Route: 061
     Dates: start: 20110624, end: 20110624
  16. MEGACE [Concomitant]
     Dosage: 10 ML, QD
     Route: 048
     Dates: start: 20110712, end: 20110718
  17. MEGACE [Concomitant]
     Dosage: 10 ML, QD
     Route: 048
     Dates: start: 20110804
  18. CONTRAST MEDIA [Concomitant]
     Dosage: 10 ML, QD
     Route: 042
     Dates: start: 20110511, end: 20110511
  19. CONTRAST MEDIA [Concomitant]
     Dosage: 10 ML, QD
     Route: 042
     Dates: start: 20110624, end: 20110624
  20. OPTIRAY 160 [Concomitant]
     Indication: COMPUTERISED TOMOGRAM
     Dosage: 100 ML, QD
     Route: 042
     Dates: start: 20101228, end: 20101228
  21. OPTIRAY 160 [Concomitant]
     Dosage: 100 ML, QD
     Route: 042
     Dates: start: 20110512, end: 20110512
  22. BACTROBAN [Concomitant]
     Dosage: 10 G, PRN
     Route: 061
     Dates: start: 20110404, end: 20110422
  23. TERBINAFINE HCL [Concomitant]
     Indication: TINEA PEDIS
     Dosage: 15 G, QD
     Route: 061
     Dates: start: 20110512
  24. LACTICARE HC [Concomitant]
     Indication: URTICARIA
     Dosage: 118 ML, PRN
     Route: 061
     Dates: start: 20110624, end: 20110801
  25. MEK INHIBITOR (DIHYDROXYPROP-DIFLU-METHOXYPHEN-CYCLOPROPA-SULFAMI) [Suspect]
     Indication: HEPATIC NEOPLASM MALIGNANT
     Dosage: 50 MG, BID
     Route: 048
     Dates: start: 20110107, end: 20110113
  26. MEK INHIBITOR (DIHYDROXYPROP-DIFLU-METHOXYPHEN-CYCLOPROPA-SULFAMI) [Suspect]
     Dosage: 50 MG, BID
     Route: 048
     Dates: start: 20110129, end: 20110206
  27. MEK INHIBITOR (DIHYDROXYPROP-DIFLU-METHOXYPHEN-CYCLOPROPA-SULFAMI) [Suspect]
     Dosage: 50 MG, QD
     Route: 048
     Dates: start: 20110207, end: 20110207
  28. AMARYL [Concomitant]
     Indication: DIABETES MELLITUS
     Dosage: 1 TAB BID
     Dates: start: 20101023
  29. MYDRIN P [Concomitant]
     Dosage: 1 ML, QD
     Route: 061
     Dates: start: 20110218, end: 20110218
  30. MEGACE [Concomitant]
     Dosage: 10 ML, QD
     Route: 048
     Dates: start: 20110624, end: 20110630
  31. LACTULOSE [Concomitant]
     Indication: CONSTIPATION PROPHYLAXIS
     Dosage: 20 ML, TID
     Route: 048
     Dates: start: 20110218, end: 20110310
  32. LIPID EMULSION [Concomitant]
     Dosage: 250 ML, QD
     Route: 042
     Dates: start: 20110318, end: 20110318
  33. HEPATAMINE [Concomitant]
     Dosage: 500 MG, QD
     Route: 042
     Dates: start: 20110404, end: 20110404
  34. DEXTROSE [Concomitant]
     Indication: FLUID REPLACEMENT
     Dosage: 500 ML, QD
     Route: 042
     Dates: start: 20110826, end: 20110826
  35. SORAFENIB (RAF KINASE INHIBITOR) [Suspect]
     Indication: HEPATIC NEOPLASM MALIGNANT
     Dosage: 600 MG, QD(200MG AM/400MG PM)
     Route: 048
     Dates: start: 20110107, end: 20110113
  36. SORAFENIB (RAF KINASE INHIBITOR) [Suspect]
     Dosage: 600 MG, QD(200MG AM/ 400MG PM)
     Route: 048
     Dates: start: 20110128, end: 20110206
  37. SORAFENIB (RAF KINASE INHIBITOR) [Suspect]
     Dosage: 400 MG, QD (PM)
     Route: 048
     Dates: start: 20110217, end: 20110217
  38. SORAFENIB (RAF KINASE INHIBITOR) [Suspect]
     Dosage: 600 MG, QD (200 MG AM/400 MG PM)
     Route: 048
     Dates: start: 20110402, end: 20110403
  39. SORAFENIB (RAF KINASE INHIBITOR) [Suspect]
     Dosage: 600 MG, QD (200 MG AM/ 400 MG PM)
     Route: 048
     Dates: start: 20110405, end: 20110418
  40. SORAFENIB (RAF KINASE INHIBITOR) [Suspect]
     Dosage: 600 MG, QD(200 MG AM/400 MG PM)
     Route: 048
     Dates: start: 20110420, end: 20110421
  41. SORAFENIB (RAF KINASE INHIBITOR) [Suspect]
     Dosage: 400 MG, QD (PM)
     Route: 048
     Dates: start: 20110602, end: 20110602
  42. SORAFENIB (RAF KINASE INHIBITOR) [Suspect]
     Dosage: 600 MG, QD (200 MG AM / 400 MG PM)
     Route: 048
     Dates: start: 20110712, end: 20110803
  43. MEGACE [Concomitant]
     Indication: PROPHYLAXIS
     Dosage: 10 ML, QD
     Route: 048
     Dates: start: 20101213, end: 20101219
  44. MEGACE [Concomitant]
     Dosage: 10 ML, QD
     Route: 048
     Dates: start: 20110401, end: 20110407
  45. MEGACE [Concomitant]
     Dosage: 10 ML, QD
     Route: 048
     Dates: start: 20110602, end: 20110608
  46. CONTRAST MEDIA [Concomitant]
     Indication: NUCLEAR MAGNETIC RESONANCE IMAGING
     Dosage: 20 ML, QD
     Route: 042
     Dates: start: 20101224, end: 20101224
  47. BACTROBAN [Concomitant]
     Indication: EXCORIATION
     Dosage: 10 G, PRN
     Route: 061
     Dates: start: 20110211, end: 20110309
  48. LACTULOSE [Concomitant]
     Dosage: 20 ML, TID
     Route: 048
     Dates: start: 20110624
  49. ULTRAVIST 150 [Concomitant]
     Indication: SCAN WITH CONTRAST
     Dosage: 500 ML, QD
     Route: 042
     Dates: start: 20110404, end: 20110404
  50. ULTRAVIST 150 [Concomitant]
     Dosage: 100 ML, QD
     Route: 042
     Dates: start: 20110803, end: 20110803
  51. TRIAMCINOLONE ACETONIDE [Concomitant]
     Indication: RETINAL VASCULAR THROMBOSIS
     Dosage: 40 MG, QD
     Route: 061
     Dates: start: 20110607, end: 20110607
  52. MEK INHIBITOR (DIHYDROXYPROP-DIFLU-METHOXYPHEN-CYCLOPROPA-SULFAMI) [Suspect]
     Dosage: 50 MG, BID
     Route: 048
     Dates: start: 20110319, end: 20110331
  53. MEK INHIBITOR (DIHYDROXYPROP-DIFLU-METHOXYPHEN-CYCLOPROPA-SULFAMI) [Suspect]
     Dosage: 50 MG, QD
     Route: 048
     Dates: start: 20110404, end: 20110404
  54. MEK INHIBITOR (DIHYDROXYPROP-DIFLU-METHOXYPHEN-CYCLOPROPA-SULFAMI) [Suspect]
     Dosage: 50 MG, BID
     Route: 048
     Dates: start: 20110405, end: 20110418
  55. MEK INHIBITOR (DIHYDROXYPROP-DIFLU-METHOXYPHEN-CYCLOPROPA-SULFAMI) [Suspect]
     Dosage: 30 MG, QD
     Route: 048
     Dates: start: 20110603, end: 20110606
  56. MEK INHIBITOR (DIHYDROXYPROP-DIFLU-METHOXYPHEN-CYCLOPROPA-SULFAMI) [Suspect]
     Dosage: 20 MG, BID (20 MG AM / 20 MG PM)
     Route: 048
     Dates: start: 20110705, end: 20110711
  57. SORAFENIB (RAF KINASE INHIBITOR) [Suspect]
     Dosage: 400 MG, QD (PM)
     Route: 048
     Dates: start: 20110512, end: 20110512
  58. SORAFENIB (RAF KINASE INHIBITOR) [Suspect]
     Dosage: 400 MG, QD (PM)
     Route: 048
     Dates: start: 20110704, end: 20110704
  59. ANALGESICS [Concomitant]
     Indication: ARTHRALGIA
     Dosage: 5 MG, PRN
     Route: 048
     Dates: start: 20100527, end: 20110309
  60. ANALGESICS [Concomitant]
     Dosage: 5 MG, PRN
     Route: 048
     Dates: start: 20110826
  61. MYDRIN P [Concomitant]
     Dosage: 1 ML, QD
     Route: 061
     Dates: start: 20110607, end: 20110607
  62. HEXAMIDINE [Concomitant]
     Dosage: 100 ML, QD
     Dates: start: 20110512, end: 20110524
  63. HEXAMIDINE [Concomitant]
     Dosage: 100 ML, BID
     Dates: start: 20110624, end: 20110703
  64. CONTRAST MEDIA [Concomitant]
     Dosage: 20 ML, QD
     Route: 042
     Dates: start: 20110217, end: 20110217
  65. TROPICAMIDE [Concomitant]
     Indication: MYDRIASIS
     Dosage: 0.8 ML, QD
     Route: 061
     Dates: start: 20110712, end: 20110712
  66. DEXTROSE [Concomitant]
     Dosage: 500 ML, QD
     Route: 042
     Dates: start: 20110829, end: 20110829
  67. SORAFENIB (RAF KINASE INHIBITOR) [Suspect]
     Dosage: 600 MG, QD(200 MG AM/400 MG PM)
     Route: 048
     Dates: start: 20110208, end: 20110216
  68. SORAFENIB (RAF KINASE INHIBITOR) [Suspect]
     Dosage: 600 MG, QD (200 MGAM/400 MG PM)
     Route: 048
     Dates: start: 20110219, end: 20110309
  69. SORAFENIB (RAF KINASE INHIBITOR) [Suspect]
     Dosage: 600 MG, QD (200 MG AM / 400 MG PM)
     Route: 048
     Dates: start: 20110705, end: 20110711
  70. SORAFENIB (RAF KINASE INHIBITOR) [Suspect]
     Dosage: 600 MG, QD (200 MG AM / 400 MG PM)
     Route: 048
     Dates: start: 20110804
  71. MAGNESIUM OXIDE [Concomitant]
     Indication: CONSTIPATION PROPHYLAXIS
     Dosage: 500 MG, BID
     Route: 048
     Dates: start: 20101130
  72. HEXAMIDINE [Concomitant]
     Dosage: 100 ML, PRN
     Dates: start: 20110310, end: 20110401
  73. NORVASC [Concomitant]
     Indication: HYPERTENSION
     Dosage: 5 MG, QD
     Route: 048
     Dates: start: 20110207
  74. MEGACE [Concomitant]
     Dosage: 10 ML, QD
     Route: 048
     Dates: start: 20110310, end: 20110316
  75. CONTRAST MEDIA [Concomitant]
     Dosage: 10 ML, QD
     Route: 042
     Dates: start: 20110804, end: 20110804
  76. GLIMEL [Concomitant]
     Indication: DIABETES MELLITUS
     Dosage: 2 MG, QD
     Route: 048
     Dates: start: 20110830
  77. MEK INHIBITOR (DIHYDROXYPROP-DIFLU-METHOXYPHEN-CYCLOPROPA-SULFAMI) [Suspect]
     Dosage: 50 MG, BID
     Route: 048
     Dates: start: 20110115, end: 20110120
  78. MEK INHIBITOR (DIHYDROXYPROP-DIFLU-METHOXYPHEN-CYCLOPROPA-SULFAMI) [Suspect]
     Dosage: 50 MG, QD
     Route: 048
     Dates: start: 20110128, end: 20110128
  79. MEK INHIBITOR (DIHYDROXYPROP-DIFLU-METHOXYPHEN-CYCLOPROPA-SULFAMI) [Suspect]
     Dosage: 50 MG, BID
     Route: 048
     Dates: start: 20110219, end: 20110309
  80. MEK INHIBITOR (DIHYDROXYPROP-DIFLU-METHOXYPHEN-CYCLOPROPA-SULFAMI) [Suspect]
     Dosage: 50 MG, BID
     Route: 048
     Dates: start: 20110402, end: 20110403
  81. MEK INHIBITOR (DIHYDROXYPROP-DIFLU-METHOXYPHEN-CYCLOPROPA-SULFAMI) [Suspect]
     Dosage: 50 MG, BID
     Route: 048
     Dates: start: 20110420, end: 20110421
  82. MEK INHIBITOR (DIHYDROXYPROP-DIFLU-METHOXYPHEN-CYCLOPROPA-SULFAMI) [Suspect]
     Dosage: 20 MG, BID (20 MG AM / 20 MG PM)
     Route: 048
     Dates: start: 20110712, end: 20110803
  83. MEK INHIBITOR (DIHYDROXYPROP-DIFLU-METHOXYPHEN-CYCLOPROPA-SULFAMI) [Suspect]
     Dosage: 20 MG, BID (20 MG AM / 20 MG PM)
     Route: 048
     Dates: start: 20110804
  84. SORAFENIB (RAF KINASE INHIBITOR) [Suspect]
     Dosage: 400 MG, QD (PM)
     Route: 048
     Dates: start: 20110128, end: 20110128
  85. SORAFENIB (RAF KINASE INHIBITOR) [Suspect]
     Dosage: 400 MG, QD (PM)
     Route: 048
     Dates: start: 20110207, end: 20110207
  86. SORAFENIB (RAF KINASE INHIBITOR) [Suspect]
     Dosage: 600 MG, QD(200 MG AM/ 400 MG PM)
     Route: 048
     Dates: start: 20110319, end: 20110331
  87. SORAFENIB (RAF KINASE INHIBITOR) [Suspect]
     Dosage: 600 MG, QD(200 MG AM/400 MG PM)
     Route: 048
     Dates: start: 20110513, end: 20110528
  88. THIAMINE HCL [Concomitant]
     Indication: HEPATITIS B
     Dosage: 20 MG, BID
     Route: 048
     Dates: start: 20100527
  89. METOCLOPRAMIDE [Concomitant]
     Dosage: 2.5 MG, TID
     Route: 048
     Dates: start: 20110422, end: 20110622
  90. HEXAMIDINE [Concomitant]
     Indication: STOMATITIS
     Dosage: 100 ML, PRN
     Dates: start: 20110117, end: 20110121
  91. HEXAMIDINE [Concomitant]
     Dosage: 100 ML, BID
     Dates: start: 20110602, end: 20110608
  92. FESTAL [Concomitant]
     Indication: VOMITING
     Dosage: 1 TAB TID
     Route: 048
     Dates: start: 20110117, end: 20110309
  93. TRIAMCINOLONE [Concomitant]
     Indication: STOMATITIS
     Dosage: 1ML
     Route: 061
     Dates: start: 20110121, end: 20110309
  94. LIPID EMULSION [Concomitant]
     Dosage: 250 ML, QD
     Route: 042
     Dates: start: 20110404, end: 20110404
  95. MEK INHIBITOR (DIHYDROXYPROP-DIFLU-METHOXYPHEN-CYCLOPROPA-SULFAMI) [Suspect]
     Dosage: 80 MG, QD(50 MG AM 30 MG PM)
     Route: 048
     Dates: start: 20110422, end: 20110422
  96. MEK INHIBITOR (DIHYDROXYPROP-DIFLU-METHOXYPHEN-CYCLOPROPA-SULFAMI) [Suspect]
     Dosage: 20 MG, QD (PM)
     Dates: start: 20110704, end: 20110704
  97. SORAFENIB (RAF KINASE INHIBITOR) [Suspect]
     Dosage: 400 MG, QD(PM)
     Route: 048
     Dates: start: 20110318, end: 20110318
  98. SORAFENIB (RAF KINASE INHIBITOR) [Suspect]
     Dosage: 400 MG, QD (PM)
     Route: 048
     Dates: start: 20110404, end: 20110404
  99. SORAFENIB (RAF KINASE INHIBITOR) [Suspect]
     Dosage: 600 MG, QD
     Route: 048
     Dates: start: 20110422, end: 20110511
  100. SORAFENIB (RAF KINASE INHIBITOR) [Suspect]
     Dosage: 400 MG, QD (AM)
     Route: 048
     Dates: start: 20110603, end: 20110606
  101. URSODIOL [Concomitant]
     Indication: HEPATITIS B
     Dosage: 200 MG, BID
     Route: 048
     Dates: start: 20100527
  102. ULTRACET [Concomitant]
     Indication: ARTHRALGIA
     Dosage: 1 TAB TID
     Dates: start: 20101015, end: 20110120
  103. METOCLOPRAMIDE [Concomitant]
     Indication: VOMITING
     Dosage: 2.5 MG, TID
     Route: 048
     Dates: start: 20110117, end: 20110121
  104. HEXAMIDINE [Concomitant]
     Dosage: 100 ML, PRN
     Route: 048
     Dates: start: 20110207, end: 20110218
  105. MEGACE [Concomitant]
     Dosage: 10 ML, QD
     Route: 048
     Dates: start: 20110512, end: 20110518
  106. CONTRAST MEDIA [Concomitant]
     Dosage: 10 ML, QD
     Route: 042
     Dates: start: 20110401, end: 20110401
  107. OPTIRAY 160 [Concomitant]
     Dosage: 100 ML, QD
     Route: 042
     Dates: start: 20110218, end: 20110218
  108. OPTIRAY 160 [Concomitant]
     Dosage: 100 ML, QD
     Route: 042
     Dates: start: 20110624, end: 20110624
  109. LIPID EMULSION [Concomitant]
     Indication: DECREASED APPETITE
     Dosage: 250 ML, QD
     Route: 042
     Dates: start: 20110310, end: 20110310
  110. HEPATAMINE [Concomitant]
     Indication: PARENTERAL NUTRITION
     Dosage: 500 MG, QD
     Route: 042
     Dates: start: 20110318, end: 20110318
  111. UREA [Concomitant]
     Indication: EXCORIATION
     Dosage: 30 G, PRN
     Route: 061
     Dates: start: 20110404, end: 20110422
  112. FLUORESCINE [Concomitant]
     Indication: ANGIOGRAM RETINA
     Dosage: 500 MG, QD
     Route: 042
     Dates: start: 20110607, end: 20110607

REACTIONS (2)
  - RETINAL VASCULAR THROMBOSIS [None]
  - ARTHRALGIA [None]
